FAERS Safety Report 6517328-1 (Version None)
Quarter: 2009Q4

REPORT INFORMATION
  Report Type: 
  Country: None (occurrence: None)
  Receive Date: 20091223
  Receipt Date: 20091215
  Transmission Date: 20100525
  Serious: Yes (Hospitalization)
  Sender: FDA-Public Use
  Company Number: US-BAXTER-2009BH019535

PATIENT
  Age: 70 Year
  Sex: Female

DRUGS (2)
  1. DIANEAL [Suspect]
     Indication: PERITONEAL DIALYSIS
     Route: 033
     Dates: start: 20091116
  2. DIANEAL [Suspect]
     Route: 033
     Dates: start: 20090301, end: 20091113

REACTIONS (3)
  - DEHYDRATION [None]
  - FAILURE TO THRIVE [None]
  - PERITONITIS BACTERIAL [None]
